FAERS Safety Report 12718582 (Version 1)
Quarter: 2016Q3

REPORT INFORMATION
  Report Type: Spontaneous
  Country: US (occurrence: US)
  Receive Date: 20160906
  Receipt Date: 20160906
  Transmission Date: 20161109
  Serious: No
  Sender: FDA-Public Use
  Company Number: US-ENDO PHARMACEUTICALS INC.-2016-004164

PATIENT
  Sex: Male

DRUGS (1)
  1. TEMAZEPAM CAPSULES [Suspect]
     Active Substance: TEMAZEPAM
     Indication: SLEEP DISORDER
     Route: 065
     Dates: start: 20160623

REACTIONS (1)
  - Drug ineffective [Unknown]

NARRATIVE: CASE EVENT DATE: 20160623
